FAERS Safety Report 7212364-4 (Version None)
Quarter: 2011Q1

REPORT INFORMATION
  Report Type: 
  Country: None (occurrence: None)
  Receive Date: 20110106
  Receipt Date: 20110104
  Transmission Date: 20110831
  Serious: Yes (Hospitalization)
  Sender: FDA-Public Use
  Company Number: KR-BRISTOL-MYERS SQUIBB COMPANY-15470156

PATIENT
  Age: 57 Year
  Sex: Male

DRUGS (3)
  1. DOCETAXEL [Suspect]
     Indication: HEAD AND NECK CANCER
     Route: 042
     Dates: start: 20100707, end: 20100818
  2. CISPLATIN [Suspect]
     Indication: HEAD AND NECK CANCER
     Dosage: INTER ON 18AUG10(42D) (30MG/M2 1 IN 1 WEEK))13SEP10-13OCT10(30D);26OCT10-ONG
     Route: 042
     Dates: start: 20100707
  3. CETUXIMAB [Suspect]
     Indication: HEAD AND NECK CANCER
     Dosage: INTER ON 13OCT10(98 DAYS) RESTART ON 26OCT10
     Route: 042
     Dates: start: 20100707

REACTIONS (2)
  - STOMATITIS [None]
  - FEBRILE NEUTROPENIA [None]
